FAERS Safety Report 9298773 (Version 1)
Quarter: 2013Q2

REPORT INFORMATION
  Report Type: Report from Study
  Country: US (occurrence: US)
  Receive Date: 20130520
  Receipt Date: 20130520
  Transmission Date: 20140414
  Serious: Yes (Hospitalization, Other)
  Sender: FDA-Public Use
  Company Number: US-GLAXOSMITHKLINE-B0892330A

PATIENT
  Age: 63 Year
  Sex: Female

DRUGS (7)
  1. OMACOR [Suspect]
     Indication: PRODUCT USED FOR UNKNOWN INDICATION
     Dosage: 1000MG PER DAY
     Route: 048
     Dates: end: 20060817
  2. COUMADIN [Suspect]
     Indication: CARDIOVASCULAR DISORDER
     Dosage: 5MG PER DAY
     Route: 065
     Dates: start: 200403, end: 200603
  3. COUMADIN [Suspect]
     Indication: CARDIOVASCULAR DISORDER
     Dosage: 2.5MG PER DAY
     Dates: start: 200603, end: 200603
  4. EZETIMIBE [Concomitant]
     Dates: start: 200404
  5. GLIPIZIDE [Concomitant]
     Dates: start: 200602
  6. GABAPENTIN [Concomitant]
     Dates: start: 200511, end: 200607
  7. FUROSEMIDE [Concomitant]
     Dates: start: 200403

REACTIONS (1)
  - Colitis ischaemic [Unknown]
